FAERS Safety Report 8932964 (Version 1)
Quarter: 2012Q4

REPORT INFORMATION
  Report Type: 
  Country: GB (occurrence: GB)
  Receive Date: 20121129
  Receipt Date: 20121129
  Transmission Date: 20130627
  Serious: Yes (Life-Threatening, Hospitalization)
  Sender: FDA-Public Use
  Company Number: GB-RANBAXY-2012R1-62299

PATIENT
  Age: 78 Year
  Sex: Female
  Weight: 87.1 kg

DRUGS (1)
  1. RISPERIDONE [Suspect]
     Indication: SCHIZOAFFECTIVE DISORDER
     Dosage: 1 mg, bid
     Route: 048
     Dates: start: 20121021, end: 20121101

REACTIONS (2)
  - Supraventricular tachycardia [Recovered/Resolved]
  - Atrial tachycardia [Recovered/Resolved]
